FAERS Safety Report 4650896-3 (Version None)
Quarter: 2005Q2

REPORT INFORMATION
  Report Type: 
  Country: None (occurrence: None)
  Receive Date: 20050429
  Receipt Date: 20050317
  Transmission Date: 20051028
  Serious: Yes (Hospitalization)
  Sender: FDA-Public Use
  Company Number: 10652

PATIENT
  Age: 60 Year
  Sex: Female

DRUGS (7)
  1. METHOTREXATE [Suspect]
     Indication: RHEUMATOID ARTHRITIS
     Dosage: 20 MG WEEKLY SC
     Route: 058
  2. ETANERCEPT [Suspect]
     Indication: RHEUMATOID ARTHRITIS
     Dosage: 25 MG 2/WK SC
     Route: 058
  3. PREDNISOLONE [Suspect]
     Dosage: 10 MG PO
     Route: 048
  4. ETODOLAC [Concomitant]
  5. AMLODIPINE [Concomitant]
  6. RAMIPRIL [Concomitant]
  7. CALCIUM CARBONATE / COLECALCIFEROL [Concomitant]

REACTIONS (2)
  - ARTHRALGIA [None]
  - ARTHRITIS BACTERIAL [None]
